FAERS Safety Report 12724458 (Version 1)
Quarter: 2016Q3

REPORT INFORMATION
  Report Type: Other
  Country: US (occurrence: US)
  Receive Date: 20160908
  Receipt Date: 20160908
  Transmission Date: 20161109
  Serious: No
  Sender: FDA-Public Use
  Company Number: US-COL_23131_2016

PATIENT
  Age: 27 Year
  Sex: Female

DRUGS (1)
  1. COLGATE TOTAL ADVANCE WHITENING [Suspect]
     Active Substance: SODIUM FLUORIDE\TRICLOSAN
     Indication: PRODUCT USED FOR UNKNOWN INDICATION
     Dosage: USED A PEA SIZE ON HER TOOTHBRUSH/BID/
     Route: 048
     Dates: start: 20160522, end: 20160523

REACTIONS (6)
  - Paraesthesia oral [Recovering/Resolving]
  - Oral discomfort [Recovering/Resolving]
  - Hypoaesthesia oral [Recovering/Resolving]
  - Lip blister [Recovering/Resolving]
  - Chemical injury [Recovering/Resolving]
  - Oral pain [Recovering/Resolving]

NARRATIVE: CASE EVENT DATE: 20160522
